FAERS Safety Report 8547589-9 (Version None)
Quarter: 2012Q3

REPORT INFORMATION
  Report Type: 
  Country: None (occurrence: None)
  Receive Date: 20120727
  Receipt Date: 20120405
  Transmission Date: 20120928
  Serious: No
  Sender: FDA-Public Use
  Company Number: US-ASTRAZENECA-2012SE22641

PATIENT
  Age: 56 Year
  Sex: Male
  Weight: 90.7 kg

DRUGS (5)
  1. RANITIDINE [Concomitant]
     Indication: GASTRIC DISORDER
  2. XANAX [Concomitant]
     Indication: ANXIETY
  3. PAXIL [Concomitant]
  4. SEROQUEL XR [Suspect]
     Indication: SLEEP DISORDER
     Route: 048
     Dates: start: 20020101
  5. SEROQUEL XR [Suspect]
     Indication: ANXIETY
     Route: 048
     Dates: start: 20020101

REACTIONS (7)
  - INTENTIONAL DRUG MISUSE [None]
  - NASOPHARYNGITIS [None]
  - WEIGHT INCREASED [None]
  - INSOMNIA [None]
  - HYPERHIDROSIS [None]
  - OFF LABEL USE [None]
  - POLLAKIURIA [None]
